FAERS Safety Report 23894777 (Version 1)
Quarter: 2024Q2

REPORT INFORMATION
  Report Type: Spontaneous
  Country: US (occurrence: None)
  Receive Date: 20240524
  Receipt Date: 20240524
  Transmission Date: 20240716
  Serious: No
  Sender: FDA-Public Use
  Company Number: US-ROCHE-3377272

PATIENT
  Sex: Female
  Weight: 68.1 kg

DRUGS (21)
  1. ACTEMRA [Suspect]
     Active Substance: TOCILIZUMAB
     Indication: Rheumatoid arthritis
     Dosage: SCHEDULED START DATE 09-JUN-2023, BUT HAS NOT RECEIVED ANY DOSES?DUE TO PRODUCT COMPLAINT
     Route: 058
  2. ACTEMRA [Suspect]
     Active Substance: TOCILIZUMAB
  3. PLAQUENIL [Concomitant]
     Active Substance: HYDROXYCHLOROQUINE SULFATE
     Indication: Rheumatoid arthritis
     Route: 048
  4. ASPIRIN [Concomitant]
     Active Substance: ASPIRIN
  5. RINVOQ [Concomitant]
     Active Substance: UPADACITINIB
  6. FLONASE ALLERGY RELIEF [Concomitant]
     Active Substance: FLUTICASONE PROPIONATE
  7. VITAMIN D3 [Concomitant]
     Active Substance: CHOLECALCIFEROL
  8. FOLIC ACID [Concomitant]
     Active Substance: FOLIC ACID
  9. FLUTICASONE [Concomitant]
     Active Substance: FLUTICASONE
  10. HYDROCODONE [Concomitant]
     Active Substance: HYDROCODONE
  11. HYDROXYCHLOROQUINE [Concomitant]
     Active Substance: HYDROXYCHLOROQUINE
  12. LEVOCETIRIZINE HYDROCHLORIDE [Concomitant]
     Active Substance: LEVOCETIRIZINE HYDROCHLORIDE
  13. MONTELUKAST [Concomitant]
     Active Substance: MONTELUKAST SODIUM
  14. OMEPRAZOLE [Concomitant]
     Active Substance: DONEPEZIL HYDROCHLORIDE\OMEPRAZOLE\OMEPRAZOLE MAGNESIUM
  15. PANTOPRAZOLE [Concomitant]
     Active Substance: PANTOPRAZOLE
  16. HIGH DENSITY POLYETHYLENE [Concomitant]
     Active Substance: HIGH DENSITY POLYETHYLENE
  17. PREDNISONE [Concomitant]
     Active Substance: PREDNISONE
  18. SERTRALINE [Concomitant]
     Active Substance: SERTRALINE HYDROCHLORIDE
  19. SPIRIVA [Concomitant]
     Active Substance: TIOTROPIUM BROMIDE MONOHYDRATE
  20. TRAZODONE [Concomitant]
     Active Substance: TRAZODONE HYDROCHLORIDE
  21. VENTOLIN HFA [Concomitant]
     Active Substance: ALBUTEROL SULFATE

REACTIONS (6)
  - Product complaint [Unknown]
  - Product dose omission issue [Unknown]
  - Arthralgia [Unknown]
  - Hypoaesthesia [Unknown]
  - Pain in extremity [Unknown]
  - Product quality issue [Unknown]

NARRATIVE: CASE EVENT DATE: 20230609
